FAERS Safety Report 4541233-3 (Version None)
Quarter: 2004Q4

REPORT INFORMATION
  Report Type: 
  Country: None (occurrence: None)
  Receive Date: 20041228
  Receipt Date: 20041207
  Transmission Date: 20050328
  Serious: Yes (Hospitalization)
  Sender: FDA-Public Use
  Company Number: US_0407104230

PATIENT
  Age: 58 Year
  Sex: Female
  Weight: 82 kg

DRUGS (9)
  1. ZYPREXA [Suspect]
     Dosage: 20 MG DAY
     Dates: start: 20010101, end: 20040101
  2. PAXIL [Concomitant]
  3. TRAZADONE (TRAZODONE) [Concomitant]
  4. ELAVIL [Concomitant]
  5. GLYBURIDE [Concomitant]
  6. METFORMIN HCL [Concomitant]
  7. REGULAR INSULIN [Concomitant]
  8. PROZAC [Concomitant]
  9. FLUOXETINE [Concomitant]

REACTIONS (20)
  - ABSCESS [None]
  - ABSCESS LIMB [None]
  - ALANINE AMINOTRANSFERASE INCREASED [None]
  - BACTERIAL INFECTION [None]
  - BLOOD ALKALINE PHOSPHATASE INCREASED [None]
  - BLOOD CHOLESTEROL ABNORMAL [None]
  - BLOOD SODIUM DECREASED [None]
  - CELLULITIS [None]
  - CULTURE WOUND POSITIVE [None]
  - DIABETES MELLITUS [None]
  - GENITAL PRURITUS FEMALE [None]
  - GLYCOSYLATED HAEMOGLOBIN INCREASED [None]
  - HYPERGLYCAEMIA [None]
  - OSTEOMYELITIS [None]
  - REFUSAL OF TREATMENT BY PATIENT [None]
  - TINEA CRURIS [None]
  - ULCER [None]
  - VAGINAL PAIN [None]
  - VISION BLURRED [None]
  - VULVAL DISORDER [None]
